FAERS Safety Report 18729555 (Version 2)
Quarter: 2021Q1

REPORT INFORMATION
  Report Type: Spontaneous
  Country: IT (occurrence: IT)
  Receive Date: 20210112
  Receipt Date: 20210113
  Transmission Date: 20210419
  Serious: Yes (Other)
  Sender: FDA-Public Use
  Company Number: IT-TEVA-2021-IT-1867149

PATIENT
  Age: 17 Year
  Sex: Male
  Weight: 66 kg

DRUGS (16)
  1. ANTRA [Concomitant]
     Active Substance: OMEPRAZOLE
  2. ONCASPAR [Concomitant]
     Active Substance: PEGASPARGASE
  3. ZOFRAN [Concomitant]
     Active Substance: ONDANSETRON HYDROCHLORIDE
  4. ZITROMAX [Concomitant]
     Active Substance: AZITHROMYCIN
  5. DECADRON [Concomitant]
     Active Substance: DEXAMETHASONE
  6. MYCOSTATIN [Concomitant]
     Active Substance: NYSTATIN
  7. METHOTREXATE. [Suspect]
     Active Substance: METHOTREXATE
     Indication: ACUTE LYMPHOCYTIC LEUKAEMIA
     Dosage: 9012 MG
     Route: 042
     Dates: start: 20200425, end: 20200428
  8. VINCRISTINE [Concomitant]
     Active Substance: VINCRISTINE
  9. CYTARABINE. [Suspect]
     Active Substance: CYTARABINE
     Indication: ACUTE LYMPHOCYTIC LEUKAEMIA
     Dosage: 3600 MG
     Route: 042
     Dates: start: 20200425, end: 20200428
  10. FLEBOCORTID RICHTER [Concomitant]
  11. TRIMETON [Concomitant]
     Active Substance: CHLORPHENIRAMINE MALEATE
  12. LASIX [Concomitant]
     Active Substance: FUROSEMIDE
  13. NICETILE [Concomitant]
     Active Substance: LEVACECARNINE HYDROCHLORIDE
  14. VINCRISTINE [Suspect]
     Active Substance: VINCRISTINE
     Indication: ACUTE LYMPHOCYTIC LEUKAEMIA
     Dosage: 2 MG
     Route: 042
     Dates: start: 20200425, end: 20200428
  15. BACTRIM [Concomitant]
     Active Substance: SULFAMETHOXAZOLE\TRIMETHOPRIM
  16. DIFLUCAN [Concomitant]
     Active Substance: FLUCONAZOLE

REACTIONS (1)
  - Mucosal inflammation [Recovered/Resolved]

NARRATIVE: CASE EVENT DATE: 20200428
